FAERS Safety Report 6145803-0 (Version None)
Quarter: 2009Q2

REPORT INFORMATION
  Report Type: 
  Country: None (occurrence: None)
  Receive Date: 20090406
  Receipt Date: 20090406
  Transmission Date: 20091009
  Serious: Yes (Death)
  Sender: FDA-Public Use
  Company Number: None

PATIENT
  Age: 15 Year
  Sex: Male
  Weight: 78.0187 kg

DRUGS (1)
  1. CARBATROL [Suspect]
     Indication: EPILEPSY
     Dosage: 100MG DAY ORAL; 300MG QHS ORAL
     Route: 048
     Dates: start: 20080301, end: 20090201

REACTIONS (4)
  - AGGRESSION [None]
  - ASPHYXIA [None]
  - COMPLETED SUICIDE [None]
  - WEIGHT DECREASED [None]
